FAERS Safety Report 17854916 (Version 3)
Quarter: 2024Q3

REPORT INFORMATION
  Report Type: Spontaneous
  Country: US (occurrence: US)
  Receive Date: 20200603
  Receipt Date: 20240805
  Transmission Date: 20241017
  Serious: No
  Sender: PFIZER
  Company Number: US-PFIZER INC-2020104608

PATIENT
  Age: 70 Year
  Sex: Male

DRUGS (1)
  1. BOSULIF [Suspect]
     Active Substance: BOSUTINIB MONOHYDRATE
     Indication: Chronic myeloid leukaemia
     Dosage: 400 MG ORALLY DAILY. TAKE 1 TABLETS BY MOUTH DAILY. TAKE WHOLE WITH WATER AND FOOD
     Route: 048

REACTIONS (1)
  - Drug eruption [Unknown]
